FAERS Safety Report 25020973 (Version 5)
Quarter: 2025Q2

REPORT INFORMATION
  Report Type: Report from Study
  Country: CA (occurrence: CA)
  Receive Date: 20250227
  Receipt Date: 20250529
  Transmission Date: 20250716
  Serious: Yes (Other)
  Sender: JOHNSON AND JOHNSON
  Company Number: CA-JNJFOC-20250259691

PATIENT
  Age: 11 Year
  Sex: Male
  Weight: 82 kg

DRUGS (3)
  1. REMICADE [Suspect]
     Active Substance: INFLIXIMAB
     Indication: Crohn^s disease
     Dosage: LOT EXPIRATION DATE : MA-2027
     Route: 041
     Dates: start: 20220413
  2. REMICADE [Suspect]
     Active Substance: INFLIXIMAB
     Route: 041
     Dates: start: 20220512
  3. REMICADE [Suspect]
     Active Substance: INFLIXIMAB
     Route: 041

REACTIONS (9)
  - Crohn^s disease [Not Recovered/Not Resolved]
  - Hypersensitivity [Unknown]
  - Throat tightness [Unknown]
  - Incorrect drug administration rate [Unknown]
  - Gastrooesophageal reflux disease [Not Recovered/Not Resolved]
  - Drug level decreased [Unknown]
  - Rash [Recovered/Resolved]
  - Therapeutic response decreased [Unknown]
  - Off label use [Unknown]

NARRATIVE: CASE EVENT DATE: 20220512
